FAERS Safety Report 8957324 (Version 1)
Quarter: 2012Q4

REPORT INFORMATION
  Report Type: 
  Country: US (occurrence: US)
  Receive Date: 20121211
  Receipt Date: 20121211
  Transmission Date: 20130627
  Serious: Yes (Other)
  Sender: FDA-Public Use
  Company Number: US-B.I. PHARMACEUTICALS,INC./RIDGEFIELD-2012-BI-02387BP

PATIENT
  Sex: Male

DRUGS (1)
  1. COMBIVENT [Suspect]
     Dosage: 14 g
     Route: 055

REACTIONS (4)
  - Prostate cancer [Unknown]
  - Renal disorder [Unknown]
  - Colitis [Unknown]
  - Malaise [Unknown]
